FAERS Safety Report 7883624-9 (Version None)
Quarter: 2011Q4

REPORT INFORMATION
  Report Type: 
  Country: None (occurrence: None)
  Receive Date: 20111102
  Receipt Date: 20111027
  Transmission Date: 20120403
  Serious: Yes (Hospitalization, Other)
  Sender: FDA-Public Use
  Company Number: US-BRISTOL-MYERS SQUIBB COMPANY-14061261

PATIENT
  Age: 54 Year
  Sex: Male
  Weight: 60 kg

DRUGS (2)
  1. ERBITUX [Suspect]
     Indication: HEAD AND NECK CANCER
     Dosage: FIRST INFU WAS STARTED ON 08NOV07,LAST DOSE ON:31DEC11.TOTAL-3110MG.
     Dates: start: 20071108, end: 20071231
  2. CISPLATIN [Suspect]
     Indication: HEAD AND NECK CANCER
     Dosage: LAST ADMINISTERED DATE:17/DEC/2011.TOTAL-100MG/M2.
     Dates: start: 20071108

REACTIONS (2)
  - NEUTROPENIA [None]
  - RECALL PHENOMENON [None]
